FAERS Safety Report 6764556-6 (Version None)
Quarter: 2010Q2

REPORT INFORMATION
  Report Type: 
  Country: None (occurrence: None)
  Receive Date: 20100609
  Receipt Date: 20100503
  Transmission Date: 20101027
  Serious: No
  Sender: FDA-Public Use
  Company Number: 2010010715

PATIENT
  Age: 15 Month
  Sex: Female
  Weight: 10.8863 kg

DRUGS (1)
  1. CHILDREN'S ZYRTEC ALLERGY [Suspect]
     Indication: HYPERSENSITIVITY
     Dosage: 0.8 ML ONCE DAILY, ORAL
     Route: 048
     Dates: start: 20100317, end: 20100320

REACTIONS (5)
  - EYE SWELLING [None]
  - OCULAR HYPERAEMIA [None]
  - PRODUCT QUALITY ISSUE [None]
  - VOMITING [None]
  - WRONG DRUG ADMINISTERED [None]
